FAERS Safety Report 9295602 (Version 1)
Quarter: 2013Q1

REPORT INFORMATION
  Report Type: Spontaneous
  Country: US (occurrence: None)
  Receive Date: 20121227
  Receipt Date: 20121227
  Transmission Date: 20140127
  Serious: No
  Sender: FDA-Public Use
  Company Number: PHEH2012US006829

PATIENT
  Age: 55 Year
  Sex: Male
  Weight: 164 kg

DRUGS (1)
  1. EXJADE [Suspect]
     Indication: MYELODYSPLASTIC SYNDROME
     Dosage: 15MG/KG/DAY (2500MG, DAILY) ORAL
     Dates: start: 20110721

REACTIONS (2)
  - Renal failure [None]
  - Serum ferritin increased [None]
